FAERS Safety Report 11875987 (Version 3)
Quarter: 2016Q1

REPORT INFORMATION
  Report Type: Spontaneous
  Country: US (occurrence: US)
  Receive Date: 20151229
  Receipt Date: 20160129
  Transmission Date: 20160526
  Serious: Yes (Other)
  Sender: FDA-Public Use
  Company Number: US-AKORN PHARMACEUTICALS-2015AKN00709

PATIENT
  Age: 19 Year
  Sex: Female
  Weight: 74.83 kg

DRUGS (2)
  1. MYORISAN [Suspect]
     Active Substance: ISOTRETINOIN
     Indication: ACNE
     Dosage: 20 MG, 2X/DAY
     Dates: start: 20151001, end: 20151212
  2. ORTHO TRI CYCLEN LO [Concomitant]
     Active Substance: ETHINYL ESTRADIOL\NORGESTIMATE
     Dosage: 1 TABLETS, 1X/DAY
     Route: 048
     Dates: start: 20150908

REACTIONS (5)
  - Vaginal haemorrhage [Unknown]
  - Unevaluable event [Unknown]
  - Blood urine present [Unknown]
  - Abortion induced [Not Recovered/Not Resolved]
  - Exposure during pregnancy [Not Recovered/Not Resolved]

NARRATIVE: CASE EVENT DATE: 20151115
